FAERS Safety Report 4657355-2 (Version None)
Quarter: 2005Q2

REPORT INFORMATION
  Report Type: 
  Country: None (occurrence: None)
  Receive Date: 20050411
  Receipt Date: 20030319
  Transmission Date: 20051028
  Serious: Yes (Other)
  Sender: FDA-Public Use
  Company Number: 5060

PATIENT
  Age: 14 Year
  Sex: Male

DRUGS (4)
  1. VINCRISTINE [Suspect]
  2. MECHLORETHAMINE [Concomitant]
  3. PROCARBAZINE [Concomitant]
  4. PREDNISONE [Concomitant]

REACTIONS (1)
  - NEUROTOXICITY [None]
